FAERS Safety Report 6836266-8 (Version None)
Quarter: 2010Q3

REPORT INFORMATION
  Report Type: 
  Country: None (occurrence: None)
  Receive Date: 20100712
  Receipt Date: 20100712
  Transmission Date: 20110219
  Serious: Yes (Hospitalization)
  Sender: FDA-Public Use
  Company Number: None

PATIENT
  Sex: Female
  Weight: 80.7 kg

DRUGS (5)
  1. AZACITIDINE [Suspect]
     Dosage: 1000 MG
     Dates: end: 20100613
  2. MS-275 (SNDX- 275, ENTINOSTAT) [Suspect]
     Dosage: 16 MG
     Dates: end: 20100613
  3. IDARUBICIN HCL [Concomitant]
  4. PLAQUENIL [Concomitant]
  5. CYTARABINE [Concomitant]

REACTIONS (6)
  - ACUTE MYELOID LEUKAEMIA RECURRENT [None]
  - BLOOD CULTURE POSITIVE [None]
  - DIARRHOEA [None]
  - PANCYTOPENIA [None]
  - PYREXIA [None]
  - RETCHING [None]
